FAERS Safety Report 8484943 (Version 2)
Quarter: 2015Q1

REPORT INFORMATION
  Report Type: Report from Study
  Country: US (occurrence: US)
  Receive Date: 20120330
  Receipt Date: 20150312
  Transmission Date: 20150721
  Serious: Yes (Death)
  Sender: FDA-Public Use
  Company Number: US-ROCHE-1054339

PATIENT
  Sex: Female

DRUGS (14)
  1. CISPLATIN. [Concomitant]
     Active Substance: CISPLATIN
     Route: 065
  2. AVASTIN [Suspect]
     Active Substance: BEVACIZUMAB
     Dosage: 28/JUL/2011
     Route: 065
  3. AVASTIN [Suspect]
     Active Substance: BEVACIZUMAB
     Indication: OVARIAN CANCER
     Route: 042
     Dates: start: 20110616
  4. NEUPOGEN [Concomitant]
     Active Substance: FILGRASTIM
     Dosage: 15/JUL/2011, 16/JUL/2011, 26/AUG/2011, 19/AUG/2011, 20/AUG/2011
     Route: 058
  5. ALOXI [Concomitant]
     Active Substance: PALONOSETRON HYDROCHLORIDE
     Route: 065
  6. CISPLATIN. [Concomitant]
     Active Substance: CISPLATIN
     Route: 065
  7. CLONIDINE. [Concomitant]
     Active Substance: CLONIDINE
     Route: 048
  8. AVASTIN [Suspect]
     Active Substance: BEVACIZUMAB
     Indication: MALIGNANT ASCITES
     Dosage: 07/JUL/2011, 08/SEP/2011, 29/SEP/2011
     Route: 042
  9. NEULASTA [Concomitant]
     Active Substance: PEGFILGRASTIM
     Dosage: 29/JUL/2011
     Route: 058
  10. GEMZAR [Concomitant]
     Active Substance: GEMCITABINE HYDROCHLORIDE
     Route: 065
  11. GEMZAR [Concomitant]
     Active Substance: GEMCITABINE HYDROCHLORIDE
     Route: 065
  12. GEMCITABINE [Concomitant]
     Active Substance: GEMCITABINE\GEMCITABINE HYDROCHLORIDE
  13. AVASTIN [Suspect]
     Active Substance: BEVACIZUMAB
     Dosage: 18/AUG/2011
     Route: 042
  14. DECADRON [Concomitant]
     Active Substance: DEXAMETHASONE
     Route: 065

REACTIONS (2)
  - Off label use [Unknown]
  - Death [Fatal]
